FAERS Safety Report 8258344-1 (Version None)
Quarter: 2012Q2

REPORT INFORMATION
  Report Type: 
  Country: None (occurrence: None)
  Receive Date: 20120403
  Receipt Date: 20120403
  Transmission Date: 20120825
  Serious: No
  Sender: FDA-Public Use
  Company Number: None

PATIENT
  Age: 32 Year
  Sex: Female
  Weight: 54.4316 kg

DRUGS (2)
  1. CYMBALTA [Suspect]
     Dosage: CYMBALTA 60MG DAILY
     Dates: start: 20100701
  2. EFFEXOR [Suspect]
     Indication: DEPRESSION
     Dosage: EFFEXOR XR DAILY 75MG PO
     Route: 048
     Dates: start: 20010201, end: 20100601

REACTIONS (2)
  - COMPLETED SUICIDE [None]
  - DRUG INEFFECTIVE [None]
